FAERS Safety Report 9438089 (Version 1)
Quarter: 2013Q3

REPORT INFORMATION
  Report Type: Spontaneous
  Country: US (occurrence: US)
  Receive Date: 20130802
  Receipt Date: 20130802
  Transmission Date: 20140515
  Serious: Yes (Hospitalization)
  Sender: FDA-Public Use
  Company Number: US-BRISTOL-MYERS SQUIBB COMPANY-16824963

PATIENT
  Age: 61 Year
  Sex: Male

DRUGS (3)
  1. WARFARIN SODIUM [Suspect]
  2. LETAIRIS [Suspect]
     Indication: PULMONARY HYPERTENSION
     Dosage: TABS
     Dates: start: 20120315, end: 20120315
  3. LETAIRIS [Suspect]
     Indication: ANTIPHOSPHOLIPID SYNDROME
     Dosage: TABS
     Dates: start: 20120315, end: 20120315

REACTIONS (4)
  - Haematoma [Unknown]
  - Subdural haematoma [Unknown]
  - Cerebrovascular accident [Unknown]
  - Cerebellar haemorrhage [Unknown]
